FAERS Safety Report 6036694-7 (Version None)
Quarter: 2009Q1

REPORT INFORMATION
  Report Type: 
  Country: None (occurrence: None)
  Receive Date: 20090114
  Receipt Date: 20090105
  Transmission Date: 20090719
  Serious: Yes (Other)
  Sender: FDA-Public Use
  Company Number: AR-BAYER-200910313LA

PATIENT
  Age: 45 Year
  Sex: Female

DRUGS (1)
  1. MIRENA [Suspect]
     Indication: MENORRHAGIA
     Route: 015
     Dates: start: 20080301

REACTIONS (3)
  - GENITAL HAEMORRHAGE [None]
  - OVARIAN CYST [None]
  - PAPILLOPHLEBITIS [None]
